FAERS Safety Report 12266600 (Version 1)
Quarter: 2016Q2

REPORT INFORMATION
  Report Type: Spontaneous
  Country: US (occurrence: US)
  Receive Date: 20160414
  Receipt Date: 20160414
  Transmission Date: 20160815
  Serious: Yes (Hospitalization)
  Sender: FDA-Public Use
  Company Number: US-BEH-2016061105

PATIENT
  Sex: Male
  Weight: 157 kg

DRUGS (36)
  1. LYRICA [Concomitant]
     Active Substance: PREGABALIN
  2. CLOBETASOL [Concomitant]
     Active Substance: CLOBETASOL
  3. ALBUTEROL. [Concomitant]
     Active Substance: ALBUTEROL
  4. FLOMAX [Concomitant]
     Active Substance: TAMSULOSIN HYDROCHLORIDE
  5. VITAMIN D [Concomitant]
     Active Substance: CHOLECALCIFEROL
  6. ACETAMINOPHEN. [Concomitant]
     Active Substance: ACETAMINOPHEN
  7. DIPHENHYDRAMINE. [Concomitant]
     Active Substance: DIPHENHYDRAMINE
  8. AMLODIPINE [Concomitant]
     Active Substance: AMLODIPINE BESYLATE
  9. HIZENTRA [Suspect]
     Active Substance: HUMAN IMMUNOGLOBULIN G
     Indication: IMMUNODEFICIENCY COMMON VARIABLE
  10. PRIMIDONE. [Concomitant]
     Active Substance: PRIMIDONE
  11. NOVOLOG [Concomitant]
     Active Substance: INSULIN ASPART
  12. OMEPRAZOLE. [Concomitant]
     Active Substance: OMEPRAZOLE
  13. HIZENTRA [Suspect]
     Active Substance: HUMAN IMMUNOGLOBULIN G
  14. ANDROGEL [Concomitant]
     Active Substance: TESTOSTERONE
  15. SERTRALINE [Concomitant]
     Active Substance: SERTRALINE HYDROCHLORIDE
  16. CLONAZEPAM. [Concomitant]
     Active Substance: CLONAZEPAM
  17. GABAPENTIN. [Concomitant]
     Active Substance: GABAPENTIN
  18. MULTIVITAMINS [Concomitant]
     Active Substance: VITAMINS
  19. MUPIROCIN. [Concomitant]
     Active Substance: MUPIROCIN
  20. HIZENTRA [Suspect]
     Active Substance: HUMAN IMMUNOGLOBULIN G
     Route: 058
  21. PRILOCAINE [Concomitant]
     Active Substance: PRILOCAINE
  22. RAMIPRIL. [Concomitant]
     Active Substance: RAMIPRIL
  23. AMITRIPTYLINE [Concomitant]
     Active Substance: AMITRIPTYLINE
  24. NABUMETONE. [Concomitant]
     Active Substance: NABUMETONE
  25. DOVONEX [Concomitant]
     Active Substance: CALCIPOTRIENE
  26. LANTUS [Concomitant]
     Active Substance: INSULIN GLARGINE
  27. SPIRIVA [Concomitant]
     Active Substance: TIOTROPIUM BROMIDE MONOHYDRATE
  28. STOOL SOFTENER [Concomitant]
     Active Substance: DOCUSATE CALCIUM
  29. BENZONATATE. [Concomitant]
     Active Substance: BENZONATATE
  30. LMX [Concomitant]
     Active Substance: LIDOCAINE
  31. FLUOXETINE [Concomitant]
     Active Substance: FLUOXETINE HYDROCHLORIDE
  32. LIDOCAINE. [Concomitant]
     Active Substance: LIDOCAINE
  33. EPIPEN [Concomitant]
     Active Substance: EPINEPHRINE
  34. GEMFIBROZIL. [Concomitant]
     Active Substance: GEMFIBROZIL
  35. HYDRALAZINE [Concomitant]
     Active Substance: HYDRALAZINE HYDROCHLORIDE
  36. VESICARE [Concomitant]
     Active Substance: SOLIFENACIN SUCCINATE

REACTIONS (2)
  - Akinesia [Unknown]
  - Sepsis [Unknown]
